FAERS Safety Report 9639527 (Version 1)
Quarter: 2013Q4

REPORT INFORMATION
  Report Type: Spontaneous
  Country: AU (occurrence: AU)
  Receive Date: 20131023
  Receipt Date: 20131023
  Transmission Date: 20140711
  Serious: Yes (Life-Threatening, Hospitalization)
  Sender: FDA-Public Use
  Company Number: AU-AMGEN-AUSSP2013073773

PATIENT
  Age: 78 Year
  Sex: Male
  Weight: 78 kg

DRUGS (3)
  1. XGEVA [Suspect]
     Indication: PRODUCT USED FOR UNKNOWN INDICATION
     Dosage: 120 MG, ONE TIME DOSE
     Route: 058
     Dates: start: 20130731
  2. DOCETAXEL [Concomitant]
     Dosage: 90 MG, ONE TIME DOSE
     Route: 042
     Dates: start: 20130731
  3. PREDNISOLONE [Concomitant]
     Dosage: 5 MG, BID
     Route: 048
     Dates: start: 20130731

REACTIONS (4)
  - Electrocardiogram abnormal [Not Recovered/Not Resolved]
  - Paraesthesia [Not Recovered/Not Resolved]
  - Febrile neutropenia [Recovered/Resolved]
  - Hypocalcaemia [Not Recovered/Not Resolved]
